FAERS Safety Report 8610931-4 (Version None)
Quarter: 2012Q3

REPORT INFORMATION
  Report Type: 
  Country: None (occurrence: None)
  Receive Date: 20120822
  Receipt Date: 20120808
  Transmission Date: 20120928
  Serious: Yes (Death, Hospitalization)
  Sender: FDA-Public Use
  Company Number: JP-COVIDIEN/TYCO HEALTHCARE/MALLINCKRODT-T201203016

PATIENT
  Sex: Female
  Weight: 35 kg

DRUGS (18)
  1. SODIUM CHLORIDE [Concomitant]
     Indication: SPUTUM RETENTION
     Dosage: 3 ML, PRN
     Dates: start: 20120719
  2. METHADONE HYDROCHLORIDE [Suspect]
     Indication: CANCER PAIN
     Dosage: 30 MG, EVERY 8 HOURS
     Route: 048
     Dates: start: 20120524, end: 20120730
  3. ALOSEN [Concomitant]
     Indication: CONSTIPATION
     Dosage: 1 G, PRN
     Dates: start: 20120404
  4. METHADONE HYDROCHLORIDE [Suspect]
     Dosage: 15 MG, EVERY 8 HOURS
     Route: 048
     Dates: start: 20120419, end: 20120425
  5. METHADONE HYDROCHLORIDE [Suspect]
     Dosage: 20 MG, EVERY 8 HOURS
     Route: 048
     Dates: start: 20120426, end: 20120509
  6. HIRUDOID                           /00723701/ [Concomitant]
     Indication: DECUBITUS ULCER
     Dosage: ADEQUATE DOSE FOR BEDSORE
     Route: 061
     Dates: start: 20120523
  7. MUCOSOLVAN [Concomitant]
     Dosage: 45 MG, TID
     Dates: start: 20120717
  8. ZOLPIDEM [Concomitant]
     Dosage: 5 MG, QD
     Dates: start: 20120627
  9. PREDNISOLONE [Concomitant]
     Dosage: 5 MG, QD
     Dates: start: 20120712
  10. METHADONE HYDROCHLORIDE [Suspect]
     Dosage: 10 MG, EVERY 8 HOURS
     Route: 048
     Dates: start: 20120403, end: 20120418
  11. METHADONE HYDROCHLORIDE [Suspect]
     Dosage: 25 MG, EVERY 8 HOURS
     Route: 048
     Dates: start: 20120510, end: 20120523
  12. LOXONIN [Concomitant]
     Dosage: 180 MG, TABLET
     Dates: start: 20111226
  13. LAXOBERON [Concomitant]
     Indication: CONSTIPATION
     Dosage: 10-15 GTT, PRN
     Dates: start: 20120509
  14. ZOMETA [Concomitant]
     Dosage: 4 MG, MONTHLY
     Dates: start: 20120418
  15. MAGMITT [Concomitant]
     Dosage: 1980 MG, TID
     Dates: start: 20120404
  16. ALEVAIRE                           /00116701/ [Concomitant]
     Indication: SPUTUM RETENTION
     Dosage: 3 ML, 0.125%, PRN
     Dates: start: 20120719
  17. ZANTAC [Concomitant]
     Dosage: 300 MG, BID
     Dates: start: 20111226
  18. MEPTIN [Concomitant]
     Dosage: 30 UG/0.3 ML
     Dates: start: 20120719

REACTIONS (1)
  - NEOPLASM PROGRESSION [None]
